FAERS Safety Report 5878603-7 (Version None)
Quarter: 2008Q3

REPORT INFORMATION
  Report Type: 
  Country: None (occurrence: None)
  Receive Date: 20080909
  Receipt Date: 20080825
  Transmission Date: 20090109
  Serious: Yes (Other)
  Sender: FDA-Public Use
  Company Number: 2008SP015283

PATIENT
  Age: 35 Year
  Sex: Female

DRUGS (1)
  1. CELESTONE [Suspect]
     Indication: MATERNAL THERAPY TO ENHANCE FOETAL LUNG MATURITY
     Dosage: 12 MG; BID
     Dates: start: 20080717

REACTIONS (4)
  - BLAST CELL COUNT INCREASED [None]
  - BLOOD DISORDER [None]
  - DRUG EXPOSURE DURING PREGNANCY [None]
  - WHITE BLOOD CELL COUNT INCREASED [None]
